FAERS Safety Report 9552034 (Version 4)
Quarter: 2014Q2

REPORT INFORMATION
  Report Type: Report from Study
  Country: US (occurrence: US)
  Receive Date: 20130925
  Receipt Date: 20140625
  Transmission Date: 20141212
  Serious: Yes (Other)
  Sender: FDA-Public Use
  Company Number: PHEH2013US019810

PATIENT
  Age: 55 Year
  Sex: Female
  Weight: 54.42 kg

DRUGS (12)
  1. GILENYA [Suspect]
     Indication: MULTIPLE SCLEROSIS
     Dosage: 0.5 MG, QD
     Route: 048
     Dates: start: 2010, end: 201309
  2. GILENYA [Suspect]
     Dosage: 0.5 MG, QD
     Route: 048
  3. PREDNISONE [Suspect]
  4. CYCLOBENZAPRINE [Concomitant]
  5. PILOCARPINE [Concomitant]
  6. LIPITOR [Concomitant]
     Indication: HYPERLIPIDAEMIA
     Dosage: 20 MG, QD
  7. VIT D [Concomitant]
  8. VIT B12 [Concomitant]
  9. CALCIUM + VITAMIN D                /01483701/ [Concomitant]
  10. BIOTIN [Concomitant]
  11. TOPAMAX [Concomitant]
  12. ALLEGRA [Concomitant]

REACTIONS (12)
  - Inflammation [Recovered/Resolved]
  - Deafness [Recovering/Resolving]
  - Drug hypersensitivity [Recovered/Resolved]
  - Rash [Recovering/Resolving]
  - Urticaria [Recovered/Resolved]
  - Nasopharyngitis [Recovered/Resolved]
  - Sinusitis [Recovered/Resolved]
  - Fungal infection [Unknown]
  - Eczema [Unknown]
  - Retinal disorder [Recovered/Resolved]
  - Vitamin D decreased [Recovered/Resolved]
  - Fatigue [Recovering/Resolving]
